FAERS Safety Report 18692094 (Version 1)
Quarter: 2021Q1

REPORT INFORMATION
  Report Type: Spontaneous
  Country: DE (occurrence: DE)
  Receive Date: 20210102
  Receipt Date: 20210102
  Transmission Date: 20210419
  Serious: Yes (Congenital Anomaly, Other)
  Sender: FDA-Public Use
  Company Number: DE-TORRENT-00019301

PATIENT
  Age: 1 Day
  Sex: Male
  Weight: 4 kg

DRUGS (3)
  1. L?THYROXIN [Concomitant]
     Active Substance: LEVOTHYROXINE SODIUM
     Indication: HYPOTHYROIDISM
     Dosage: 50 [G/D ]
     Route: 064
     Dates: start: 20190811, end: 20200507
  2. COPAXONE [Concomitant]
     Active Substance: GLATIRAMER ACETATE
     Indication: MULTIPLE SCLEROSIS
     Dosage: 40 [MG/D ]
     Route: 064
     Dates: start: 20190811, end: 20190912
  3. LAMOTRIGINE. [Suspect]
     Active Substance: LAMOTRIGINE
     Indication: EPILEPSY
     Dosage: 450 MG/D (200?0?250 MG/D), IN THE BEGINNING OF PREGNANCY 350 MG/D. DOSAGE INCREASE, UNKNOWN WHEN
     Route: 064
     Dates: start: 20190811, end: 20200507

REACTIONS (2)
  - Hypospadias [Not Recovered/Not Resolved]
  - Foetal exposure during pregnancy [Unknown]

NARRATIVE: CASE EVENT DATE: 20190811
